FAERS Safety Report 18473056 (Version 1)
Quarter: 2020Q4

REPORT INFORMATION
  Report Type: Spontaneous
  Country: US (occurrence: US)
  Receive Date: 20201106
  Receipt Date: 20201106
  Transmission Date: 20210114
  Serious: Yes (Death, Hospitalization)
  Sender: FDA-Public Use
  Company Number: US-MYLANLABS-2020M1092868

PATIENT
  Age: 3 Year
  Sex: Female

DRUGS (15)
  1. LEVETIRACETAM. [Suspect]
     Active Substance: LEVETIRACETAM
     Indication: SEIZURE
     Route: 042
  2. ETOPOSIDE. [Suspect]
     Active Substance: ETOPOSIDE
     Indication: NEPHROBLASTOMA
     Dosage: PART OF CHILDREN^S ONCOLOGY GROUP (COG) PROTOCOL AREN0321 REGIMEN I; SIX MONTHS OF SALVAGE REGIMEN
     Route: 065
  3. CYCLOPHOSPHAMIDE. [Suspect]
     Active Substance: CYCLOPHOSPHAMIDE
     Indication: NEPHROBLASTOMA
     Dosage: PART OF CHILDREN^S ONCOLOGY GROUP (COG) PROTOCOL AREN0321 REGIMEN I; SIX MONTHS OF SALVAGE REGIMEN
     Route: 065
  4. VINCRISTINE [Suspect]
     Active Substance: VINCRISTINE
     Indication: SALVAGE THERAPY
     Dosage: PART OF CHILDREN^S ONCOLOGY GROUP (COG) PROTOCOL AREN0321 REGIMEN I; SIX MONTHS OF SALVAGE REGIMEN
     Route: 065
  5. DOXORUBICIN [Suspect]
     Active Substance: DOXORUBICIN
     Indication: NEPHROBLASTOMA
     Dosage: PART OF CHILDREN^S ONCOLOGY GROUP (COG) PROTOCOL AREN0321 REGIMEN I; SIX MONTHS OF SALVAGE REGIMEN
     Route: 065
  6. ETOPOSIDE. [Suspect]
     Active Substance: ETOPOSIDE
     Indication: SALVAGE THERAPY
  7. LEVETIRACETAM. [Suspect]
     Active Substance: LEVETIRACETAM
     Indication: STATUS EPILEPTICUS
  8. FOSPHENYTOIN [Suspect]
     Active Substance: FOSPHENYTOIN
     Indication: SEIZURE
     Route: 065
  9. DEXAMETHASONE. [Concomitant]
     Active Substance: DEXAMETHASONE
     Indication: EPSTEIN-BARR VIRUS ASSOCIATED LYMPHOPROLIFERATIVE DISORDER
     Dosage: INITIAL DOSE NOT STATED
     Route: 065
  10. DACTINOMYCIN [Suspect]
     Active Substance: DACTINOMYCIN
     Indication: NEPHROBLASTOMA
     Dosage: PART OF CHILDREN^S ONCOLOGY GROUP (COG) REGIMEN EE4A; FOUR MONTHS OF CHEMOTHERAPY
     Route: 065
  11. DOXORUBICIN [Suspect]
     Active Substance: DOXORUBICIN
     Indication: SALVAGE THERAPY
  12. VINCRISTINE [Suspect]
     Active Substance: VINCRISTINE
     Indication: NEPHROBLASTOMA
     Dosage: PART OF CHILDREN^S ONCOLOGY GROUP (COG) REGIMEN EE4A; FOUR MONTHS OF CHEMOTHERAPY
     Route: 065
  13. CYCLOPHOSPHAMIDE. [Suspect]
     Active Substance: CYCLOPHOSPHAMIDE
     Indication: SALVAGE THERAPY
  14. FOSPHENYTOIN [Suspect]
     Active Substance: FOSPHENYTOIN
     Indication: STATUS EPILEPTICUS
  15. DEXAMETHASONE. [Concomitant]
     Active Substance: DEXAMETHASONE
     Indication: DIFFUSE LARGE B-CELL LYMPHOMA
     Dosage: 0.3 MILLIGRAM/KILOGRAM, Q8H
     Route: 065

REACTIONS (4)
  - Epstein-Barr virus associated lymphoproliferative disorder [Fatal]
  - Drug ineffective [Unknown]
  - Septic shock [Fatal]
  - Diffuse large B-cell lymphoma [Fatal]
